FAERS Safety Report 10406502 (Version 1)
Quarter: 2014Q3

REPORT INFORMATION
  Report Type: Spontaneous
  Country: IT (occurrence: IT)
  Receive Date: 20140825
  Receipt Date: 20140825
  Transmission Date: 20150326
  Serious: Yes (Other)
  Sender: FDA-Public Use
  Company Number: PHHY2014IT104101

PATIENT
  Age: 54 Year
  Sex: Male

DRUGS (4)
  1. NSAID^S [Suspect]
     Active Substance: UNSPECIFIED INGREDIENT
  2. METHOTREXATE [Suspect]
     Active Substance: METHOTREXATE
  3. ETANERCEPT [Suspect]
     Active Substance: ETANERCEPT
     Dosage: 50 MG, QW
  4. PREDNISONE. [Suspect]
     Active Substance: PREDNISONE

REACTIONS (3)
  - Aspartate aminotransferase increased [Recovered/Resolved]
  - Hepatic steatosis [Recovered/Resolved]
  - Alanine aminotransferase increased [Recovered/Resolved]
